FAERS Safety Report 17624282 (Version 2)
Quarter: 2020Q3

REPORT INFORMATION
  Report Type: Spontaneous
  Country: US (occurrence: US)
  Receive Date: 20200403
  Receipt Date: 20200707
  Transmission Date: 20201102
  Serious: No
  Sender: FDA-Public Use
  Company Number: US-PFIZER INC-2019171176

PATIENT
  Age: 68 Year
  Sex: Female
  Weight: 90.7 kg

DRUGS (1)
  1. FLECTOR [Suspect]
     Active Substance: DICLOFENAC EPOLAMINE
     Indication: ARTHRALGIA
     Dosage: 1 DF, 2X/DAY (APPLY 1 PATCH TOPICALLY 2 TIMES A DAY)
     Route: 061

REACTIONS (3)
  - Product use in unapproved indication [Unknown]
  - Gait disturbance [Unknown]
  - Off label use [Unknown]
